FAERS Safety Report 16515971 (Version 1)
Quarter: 2019Q3

REPORT INFORMATION
  Report Type: Spontaneous
  Country: US (occurrence: US)
  Receive Date: 20190522
  Receipt Date: 20190522
  Transmission Date: 20191004
  Serious: No
  Sender: FDA-Public Use
  Company Number: None

PATIENT
  Age: 82 Year
  Sex: Female

DRUGS (1)
  1. METHOTREXATE INJ 25MG/ML 2ML MDV [Suspect]
     Active Substance: METHOTREXATE SODIUM
     Dosage: ?          OTHER FREQUENCY:OTHER;?
     Dates: start: 201805

REACTIONS (3)
  - Feeling hot [None]
  - Flushing [None]
  - Condition aggravated [None]

NARRATIVE: CASE EVENT DATE: 20190522
